FAERS Safety Report 5924379-4 (Version None)
Quarter: 2008Q4

REPORT INFORMATION
  Report Type: 
  Country: None (occurrence: None)
  Receive Date: 20081020
  Receipt Date: 20081015
  Transmission Date: 20090506
  Serious: Yes (Death)
  Sender: FDA-Public Use
  Company Number: FR-ELI_LILLY_AND_COMPANY-FR200809006085

PATIENT
  Sex: Female

DRUGS (10)
  1. BYETTA [Suspect]
     Indication: TYPE 2 DIABETES MELLITUS
     Dosage: 5 UG, 2/D
     Route: 058
  2. METFORMIN HCL [Concomitant]
     Indication: TYPE 2 DIABETES MELLITUS
     Dosage: UNK, UNKNOWN
     Route: 048
  3. PREVISCAN [Concomitant]
     Indication: PULMONARY EMBOLISM
  4. FUROSEMIDE [Concomitant]
     Indication: HYPERTENSION
     Dosage: 20 MG, UNKNOWN
     Route: 065
  5. DIFFU K [Concomitant]
  6. RAMIPRIL [Concomitant]
     Indication: HYPERTENSION
     Dosage: 10 MG, UNKNOWN
     Route: 065
  7. NEXIUM [Concomitant]
     Dosage: 20 MG, UNKNOWN
     Route: 065
  8. PRAVASTATIN [Concomitant]
     Indication: DYSLIPIDAEMIA
     Dosage: 40 MG, UNKNOWN
     Route: 065
  9. BISOPROLOL FUMARATE [Concomitant]
     Indication: HYPERTENSION
  10. NIZORAL [Concomitant]
     Indication: FUNGAL INFECTION

REACTIONS (1)
  - DEATH [None]
